FAERS Safety Report 6983700-9 (Version None)
Quarter: 2010Q3

REPORT INFORMATION
  Report Type: 
  Country: None (occurrence: None)
  Receive Date: 20100914
  Receipt Date: 20051220
  Transmission Date: 20110219
  Serious: Yes (Death)
  Sender: FDA-Public Use
  Company Number: US-WYE-H07163408

PATIENT
  Age: 21 Month
  Sex: Female
  Weight: 12.8 kg

DRUGS (6)
  1. CHILDREN'S ADVIL [Suspect]
     Indication: PAIN
     Dosage: 100 MG EVERY SIX HOURS AS NEEDED
     Route: 048
     Dates: start: 20021001, end: 20021119
  2. INTRALIPID 20% [Concomitant]
     Dosage: UNKNOWN
     Route: 065
  3. LASIX [Concomitant]
     Dosage: UNKNOWN
     Route: 065
  4. TYLENOL W/ CODEINE NO. 3 [Concomitant]
     Dosage: UNKNOWN
     Route: 065
  5. ALDACTONE [Concomitant]
     Dosage: UNKNOWN
     Route: 065
  6. TYLENOL [Concomitant]
     Dosage: UNKNOWN
     Route: 065

REACTIONS (3)
  - EPISTAXIS [None]
  - GASTROINTESTINAL HAEMORRHAGE [None]
  - OVERDOSE [None]
